FAERS Safety Report 25569142 (Version 1)
Quarter: 2025Q3

REPORT INFORMATION
  Report Type: Report from Study
  Country: EU (occurrence: EU)
  Receive Date: 20250716
  Receipt Date: 20250716
  Transmission Date: 20251021
  Serious: Yes (Hospitalization)
  Sender: MYLAN
  Company Number: EU-BoehringerIngelheim-2025-BI-071720

PATIENT
  Age: 67 Year
  Sex: Male
  Weight: 65 kg

DRUGS (8)
  1. SILDENAFIL [Suspect]
     Active Substance: SILDENAFIL
     Indication: Product used for unknown indication
  2. SILDENAFIL [Suspect]
     Active Substance: SILDENAFIL
     Route: 065
  3. SILDENAFIL [Suspect]
     Active Substance: SILDENAFIL
     Route: 065
  4. SILDENAFIL [Suspect]
     Active Substance: SILDENAFIL
  5. OFEV [Suspect]
     Active Substance: NINTEDANIB
     Indication: Pulmonary fibrosis
     Dosage: 150 MILLIGRAM, BID (12 HOURS)
     Dates: start: 201805
  6. OFEV [Suspect]
     Active Substance: NINTEDANIB
     Dosage: 150 MILLIGRAM, BID (12 HOURS)
     Route: 048
     Dates: start: 201805
  7. OFEV [Suspect]
     Active Substance: NINTEDANIB
     Dosage: 150 MILLIGRAM, BID (12 HOURS)
     Route: 048
     Dates: start: 201805
  8. OFEV [Suspect]
     Active Substance: NINTEDANIB
     Dosage: 150 MILLIGRAM, BID (12 HOURS)
     Dates: start: 201805

REACTIONS (2)
  - Respiratory tract infection [Recovered/Resolved]
  - Diarrhoea [Not Recovered/Not Resolved]

NARRATIVE: CASE EVENT DATE: 20250101
